FAERS Safety Report 4662572-1 (Version None)
Quarter: 2005Q2

REPORT INFORMATION
  Report Type: 
  Country: None (occurrence: None)
  Receive Date: 20050513
  Receipt Date: 20050513
  Transmission Date: 20051028
  Serious: Yes (Other)
  Sender: FDA-Public Use
  Company Number: None

PATIENT
  Sex: Male
  Weight: 77.9 kg

DRUGS (4)
  1. ZIPRASIDONE  80MG  PFIZER [Suspect]
     Indication: POST-TRAUMATIC STRESS DISORDER
     Dosage: 80MG  BID ORAL
     Route: 048
     Dates: start: 20041214, end: 20041231
  2. HYDROXYCHLOROQUINE SULFATE [Concomitant]
  3. SIMVASTATIN [Concomitant]
  4. ZIPRASIDONE [Concomitant]

REACTIONS (1)
  - ASTHENIA [None]
